FAERS Safety Report 10540043 (Version 1)
Quarter: 2014Q4

REPORT INFORMATION
  Report Type: Spontaneous
  Country: US (occurrence: None)
  Receive Date: 20141023
  Receipt Date: 20141023
  Transmission Date: 20150529
  Serious: Yes (Hospitalization)
  Sender: FDA-Public Use
  Company Number: None

PATIENT
  Age: 75 Year
  Sex: Male
  Weight: 97.3 kg

DRUGS (2)
  1. DEXTROSE/HEPARIN [Suspect]
     Active Substance: DEXTROSE\HEPARIN
     Indication: ATRIAL FIBRILLATION
     Dosage: 1500 UNITS PER HOUR IV
     Route: 042
     Dates: start: 20140904, end: 20140907
  2. WARFARIN [Suspect]
     Active Substance: WARFARIN
     Indication: ATRIAL FIBRILLATION
     Dosage: 12.5 MG AT BEDTIME PO
     Route: 048
     Dates: start: 20140904, end: 20140907

REACTIONS (4)
  - Hypotension [None]
  - Shock haemorrhagic [None]
  - Anaemia [None]
  - Abdominal wall haematoma [None]

NARRATIVE: CASE EVENT DATE: 20140907
